FAERS Safety Report 21625802 (Version 1)
Quarter: 2022Q4

REPORT INFORMATION
  Report Type: Spontaneous
  Country: US (occurrence: US)
  Receive Date: 20221122
  Receipt Date: 20221122
  Transmission Date: 20230113
  Serious: No
  Sender: FDA-Public Use
  Company Number: US-INSMED, INC.-2022-00016-US

PATIENT
  Sex: Male
  Weight: 72.562 kg

DRUGS (1)
  1. ARIKAYCE [Suspect]
     Active Substance: AMIKACIN
     Indication: Mycobacterial infection
     Dosage: 590 MILLIGRAM, QD
     Route: 055
     Dates: start: 20211229

REACTIONS (4)
  - Condition aggravated [Recovering/Resolving]
  - Salivary hypersecretion [Unknown]
  - Cough [Unknown]
  - Drug ineffective [Unknown]
